FAERS Safety Report 5123250-8 (Version None)
Quarter: 2006Q4

REPORT INFORMATION
  Report Type: 
  Country: None (occurrence: None)
  Receive Date: 20061009
  Receipt Date: 20061003
  Transmission Date: 20070319
  Serious: Yes (Other)
  Sender: FDA-Public Use
  Company Number: US-GLAXOSMITHKLINE-A0622308A

PATIENT
  Age: 6 Year
  Sex: Female

DRUGS (4)
  1. LAMICTAL [Suspect]
     Indication: CONVULSION
     Dosage: 2MG THREE TIMES PER DAY
     Route: 048
     Dates: start: 20060915
  2. MIRALAX [Concomitant]
  3. KLONOPIN [Concomitant]
  4. DIASTAT [Concomitant]

REACTIONS (4)
  - CONVULSION [None]
  - DENTAL CARIES [None]
  - DRUG ADMINISTRATION ERROR [None]
  - MASTICATION DISORDER [None]
